FAERS Safety Report 9475852 (Version 1)
Quarter: 2013Q3

REPORT INFORMATION
  Report Type: Spontaneous
  Country: US (occurrence: None)
  Receive Date: 20130822
  Receipt Date: 20130822
  Transmission Date: 20140515
  Serious: Yes (Other)
  Sender: FDA-Public Use
  Company Number: None

PATIENT
  Age: 51 Year
  Sex: Female
  Weight: 88.91 kg

DRUGS (1)
  1. QSYMIA [Suspect]
     Indication: OBESITY
     Route: 048
     Dates: start: 00130808, end: 20130816

REACTIONS (1)
  - Angle closure glaucoma [None]
